FAERS Safety Report 11438245 (Version 2)
Quarter: 2015Q3

REPORT INFORMATION
  Report Type: Spontaneous
  Country: US (occurrence: US)
  Receive Date: 20150901
  Receipt Date: 20150918
  Transmission Date: 20151125
  Serious: Yes (Other)
  Sender: FDA-Public Use
  Company Number: US-BEH-2015053398

PATIENT

DRUGS (1)
  1. HIZENTRA [Suspect]
     Active Substance: HUMAN IMMUNOGLOBULIN G
     Indication: PRODUCT USED FOR UNKNOWN INDICATION

REACTIONS (4)
  - Gastrointestinal disorder [Unknown]
  - Probiotic therapy [Unknown]
  - Abdominal pain [Unknown]
  - Clostridium difficile infection [Unknown]
